FAERS Safety Report 13105410 (Version 2)
Quarter: 2017Q1

REPORT INFORMATION
  Report Type: Report from Study
  Country: None (occurrence: LT)
  Receive Date: 20170111
  Receipt Date: 20170206
  Transmission Date: 20170428
  Serious: Yes (Hospitalization)
  Sender: FDA-Public Use
  Company Number: LT-ABBVIE-17P-234-1831494-00

PATIENT
  Age: 47 Year
  Sex: Female

DRUGS (1)
  1. HUMIRA [Suspect]
     Active Substance: ADALIMUMAB
     Indication: CROHN^S DISEASE
     Route: 058
     Dates: start: 201402

REACTIONS (1)
  - Pelvic fluid collection [Recovering/Resolving]

NARRATIVE: CASE EVENT DATE: 20170102
